FAERS Safety Report 12717060 (Version 1)
Quarter: 2016Q3

REPORT INFORMATION
  Report Type: Spontaneous
  Country: US (occurrence: US)
  Receive Date: 20160906
  Receipt Date: 20160906
  Transmission Date: 20161109
  Serious: No
  Sender: FDA-Public Use
  Company Number: US-ELI_LILLY_AND_COMPANY-US201608010713

PATIENT
  Age: 70 Year
  Sex: Female

DRUGS (2)
  1. TRULICITY [Suspect]
     Active Substance: DULAGLUTIDE
     Dosage: 0.75, UNKNOWN
     Route: 065
     Dates: start: 201605
  2. TRULICITY [Suspect]
     Active Substance: DULAGLUTIDE
     Indication: DIABETES MELLITUS
     Dosage: 0.75, UNKNOWN
     Route: 065
     Dates: start: 201512

REACTIONS (2)
  - Abdominal pain upper [Unknown]
  - Hernia [Unknown]

NARRATIVE: CASE EVENT DATE: 201602
